FAERS Safety Report 7537306-3 (Version None)
Quarter: 2011Q2

REPORT INFORMATION
  Report Type: 
  Country: None (occurrence: None)
  Receive Date: 20110609
  Receipt Date: 20110529
  Transmission Date: 20111010
  Serious: Yes (Other)
  Sender: FDA-Public Use
  Company Number: UA-TEVA-285087ISR

PATIENT
  Sex: Female

DRUGS (1)
  1. METHOTREXATE [Suspect]
     Indication: LEUKAEMIA
     Route: 030

REACTIONS (3)
  - NYSTAGMUS [None]
  - CONVULSION [None]
  - LOSS OF CONSCIOUSNESS [None]
